FAERS Safety Report 8025059 (Version 2)
Quarter: 2013Q1

REPORT INFORMATION
  Report Type: Spontaneous
  Country: US (occurrence: US)
  Receive Date: 20110707
  Receipt Date: 20130116
  Transmission Date: 20140127
  Serious: Yes (Hospitalization, Other)
  Sender: FDA-Public Use
  Company Number: US-ASTRAZENECA-2011SE39063

PATIENT
  Age: 70 Year
  Sex: Male

DRUGS (3)
  1. CRESTOR [Suspect]
     Route: 048
  2. RADIATION [Suspect]
     Route: 065
  3. BIOPSY [Suspect]
     Route: 065

REACTIONS (4)
  - Convulsion [Unknown]
  - Malaise [Unknown]
  - Paralysis [Unknown]
  - Cerebrovascular accident [Unknown]
